FAERS Safety Report 18613480 (Version 1)
Quarter: 2020Q4

REPORT INFORMATION
  Report Type: Spontaneous
  Country: US (occurrence: US)
  Receive Date: 20201214
  Receipt Date: 20201214
  Transmission Date: 20210114
  Serious: No
  Sender: FDA-Public Use
  Company Number: US-NOVOPROD-703495

PATIENT
  Sex: Male

DRUGS (3)
  1. LEVEMIR [Suspect]
     Active Substance: INSULIN DETEMIR
     Dosage: UNK
  2. LEVEMIR [Suspect]
     Active Substance: INSULIN DETEMIR
     Dosage: 62 IU, BID
     Route: 058
  3. LEVEMIR [Suspect]
     Active Substance: INSULIN DETEMIR
     Indication: DIABETES MELLITUS
     Dosage: 62 IU, BID
     Route: 058

REACTIONS (1)
  - Hypoacusis [Not Recovered/Not Resolved]
